FAERS Safety Report 4971094-X (Version None)
Quarter: 2006Q1

REPORT INFORMATION
  Report Type: 
  Country: None (occurrence: None)
  Receive Date: 20060228
  Receipt Date: 20050221
  Transmission Date: 20060701
  Serious: No
  Sender: FDA-Public Use
  Company Number: 05P-163-0291611-00

PATIENT
  Age: 34 Year
  Sex: Male

DRUGS (3)
  1. MIVACRON [Suspect]
     Indication: NEUROMUSCULAR BLOCKADE
     Dosage: 3 CC, ONCE, INTRAVENOUS
     Route: 042
     Dates: start: 20050201, end: 20050201
  2. DESFLURANE [Concomitant]
  3. PROPOFOL [Concomitant]

REACTIONS (1)
  - NEUROMUSCULAR BLOCK PROLONGED [None]
